FAERS Safety Report 4497357-2 (Version None)
Quarter: 2004Q4

REPORT INFORMATION
  Report Type: 
  Country: None (occurrence: None)
  Receive Date: 20041104
  Receipt Date: 20041028
  Transmission Date: 20050328
  Serious: Yes (Hospitalization)
  Sender: FDA-Public Use
  Company Number: STA-AE-04-MTX-442

PATIENT
  Age: 54 Year
  Sex: Female

DRUGS (10)
  1. METHOTREXATE [Suspect]
     Indication: RHEUMATOID ARTHRITIS
     Dosage: 20 MG 1X PER 1 WK, ORAL
     Route: 048
     Dates: start: 20021101, end: 20040727
  2. NEXIUM [Concomitant]
  3. PREDNISONE [Concomitant]
  4. IBUPROFEN [Concomitant]
  5. NEURONTIN [Concomitant]
  6. CLONAZEPAM [Concomitant]
  7. LASIX [Concomitant]
  8. LISINOPRIL [Concomitant]
  9. FOLIC ACID [Concomitant]
  10. TRICOR [Concomitant]

REACTIONS (5)
  - BLOOD POTASSIUM INCREASED [None]
  - BONE MARROW DEPRESSION [None]
  - CARDIAC DISORDER [None]
  - DRUG LEVEL INCREASED [None]
  - RENAL FAILURE [None]
